FAERS Safety Report 23212482 (Version 1)
Quarter: 2023Q4

REPORT INFORMATION
  Report Type: Spontaneous
  Country: US (occurrence: None)
  Receive Date: 20231121
  Receipt Date: 20231121
  Transmission Date: 20240110
  Serious: Yes (Disabling)
  Sender: FDA-Public Use
  Company Number: None

PATIENT
  Age: 17 Year
  Sex: Female
  Weight: 42.75 kg

DRUGS (2)
  1. LEXAPRO [Suspect]
     Active Substance: ESCITALOPRAM OXALATE
     Indication: Anxiety
     Dosage: OTHER QUANTITY : 1 TABLET(S);?FREQUENCY : DAILY;?
     Route: 048
  2. LEXAPRO [Suspect]
     Active Substance: ESCITALOPRAM OXALATE
     Indication: Depression

REACTIONS (36)
  - Suicide attempt [None]
  - Seizure [None]
  - Constipation [None]
  - Dehydration [None]
  - Back pain [None]
  - Pain in extremity [None]
  - Hallucination [None]
  - Psychotic disorder [None]
  - Abnormal behaviour [None]
  - Anger [None]
  - Apathy [None]
  - Suicidal ideation [None]
  - Decreased interest [None]
  - Depression [None]
  - Fatigue [None]
  - Dysmenorrhoea [None]
  - Confusional state [None]
  - Loss of consciousness [None]
  - Neuralgia [None]
  - Pain in extremity [None]
  - Renal pain [None]
  - Arthralgia [None]
  - Depersonalisation/derealisation disorder [None]
  - Brain fog [None]
  - Anxiety [None]
  - Thinking abnormal [None]
  - Photophobia [None]
  - Hyperacusis [None]
  - Eye movement disorder [None]
  - Vision blurred [None]
  - Paranoia [None]
  - Tremor [None]
  - Withdrawal syndrome [None]
  - Quality of life decreased [None]
  - Restlessness [None]
  - Bipolar disorder [None]

NARRATIVE: CASE EVENT DATE: 20210307
